FAERS Safety Report 20491132 (Version 1)
Quarter: 2022Q1

REPORT INFORMATION
  Report Type: Spontaneous
  Country: EG (occurrence: EG)
  Receive Date: 20220218
  Receipt Date: 20220218
  Transmission Date: 20220423
  Serious: Yes (Other)
  Sender: FDA-Public Use
  Company Number: EG-AMGEN-EGYSP2022025211

PATIENT

DRUGS (1)
  1. ADALIMUMAB [Suspect]
     Active Substance: ADALIMUMAB
     Indication: Behcet^s syndrome
     Dosage: UNK
     Route: 065

REACTIONS (13)
  - Diarrhoea haemorrhagic [Unknown]
  - Erythema nodosum [Unknown]
  - Mouth ulceration [Unknown]
  - Genital ulceration [Unknown]
  - Pustule [Unknown]
  - Superficial vein thrombosis [Unknown]
  - Fatigue [Unknown]
  - Arthralgia [Unknown]
  - Arthritis [Unknown]
  - Headache [Unknown]
  - Nausea [Unknown]
  - Vomiting [Unknown]
  - Abdominal pain [Unknown]
